FAERS Safety Report 18445149 (Version 1)
Quarter: 2020Q4

REPORT INFORMATION
  Report Type: Spontaneous
  Country: US (occurrence: US)
  Receive Date: 20201030
  Receipt Date: 20201030
  Transmission Date: 20210114
  Serious: No
  Sender: FDA-Public Use
  Company Number: US-CADILA HEALTHCARE LIMITED-US-ZYDUS-051916

PATIENT
  Sex: Female

DRUGS (1)
  1. CARVEDILOL 12.5 MILLIGRAM TABLET [Suspect]
     Active Substance: CARVEDILOL
     Indication: HYPERTENSION
     Dosage: 12.5 MILLIGRAM, BID
     Route: 048

REACTIONS (1)
  - Visual impairment [Not Recovered/Not Resolved]
